FAERS Safety Report 10599611 (Version 24)
Quarter: 2017Q2

REPORT INFORMATION
  Report Type: Report from Study
  Country: US (occurrence: US)
  Receive Date: 20141121
  Receipt Date: 20170421
  Transmission Date: 20170829
  Serious: Yes (Hospitalization, Disabling)
  Sender: FDA-Public Use
  Company Number: US-B.I. PHARMACEUTICALS,INC./RIDGEFIELD-2014-BI-54000BI

PATIENT
  Age: 69 Year
  Sex: Male
  Weight: 96.9 kg

DRUGS (42)
  1. LANTUS [Concomitant]
     Active Substance: INSULIN GLARGINE
     Indication: TYPE 2 DIABETES MELLITUS
     Route: 058
     Dates: start: 20140717
  2. LANTUS [Concomitant]
     Active Substance: INSULIN GLARGINE
     Dosage: FORMULATION: 100 UNITS/ML INJECTION
     Route: 058
     Dates: start: 20150218
  3. APIDRA [Concomitant]
     Active Substance: INSULIN GLULISINE
     Indication: TYPE 2 DIABETES MELLITUS
     Dosage: STRENGTH: 100 UNITS/ML
     Route: 058
     Dates: start: 20150218
  4. APIDRA [Concomitant]
     Active Substance: INSULIN GLULISINE
     Dosage: STRENGTH: 100 UNITS/ML
     Route: 058
     Dates: start: 20150218
  5. APIDRA [Concomitant]
     Active Substance: INSULIN GLULISINE
     Route: 058
     Dates: start: 20150219
  6. APIDRA [Concomitant]
     Active Substance: INSULIN GLULISINE
     Route: 058
     Dates: start: 20150217
  7. ACETAMINOPHEN. [Concomitant]
     Active Substance: ACETAMINOPHEN
     Indication: PYREXIA
     Route: 048
     Dates: start: 20150218, end: 20150220
  8. LINAGLIPTIN [Suspect]
     Active Substance: LINAGLIPTIN
     Route: 048
     Dates: start: 20150220
  9. AMLODIPINE [Concomitant]
     Active Substance: AMLODIPINE BESYLATE
     Indication: HYPERTENSION
     Route: 048
     Dates: start: 20111003
  10. APIDRA [Concomitant]
     Active Substance: INSULIN GLULISINE
     Route: 058
     Dates: start: 20150216
  11. APIDRA [Concomitant]
     Active Substance: INSULIN GLULISINE
     Route: 058
     Dates: start: 20150217
  12. NACL NORMAL SALINE [Concomitant]
     Dosage: STRENGTH: 0.45%
     Route: 042
     Dates: start: 20150215
  13. DEXTROSE. [Concomitant]
     Active Substance: DEXTROSE
     Dosage: STRENGTH : 10%
     Route: 042
     Dates: start: 20150215
  14. GLUCAGON. [Concomitant]
     Active Substance: GLUCAGON
     Route: 048
     Dates: start: 20150215
  15. LANTUS [Concomitant]
     Active Substance: INSULIN GLARGINE
     Route: 058
     Dates: start: 20150213
  16. DEXTROSE. [Concomitant]
     Active Substance: DEXTROSE
     Indication: FLUID REPLACEMENT
     Dosage: STRENGTH : 50%
     Route: 042
     Dates: start: 20150215
  17. SODIUM BICARBONATE. [Concomitant]
     Active Substance: SODIUM BICARBONATE
     Indication: ELECTROLYTE IMBALANCE
     Route: 048
     Dates: start: 20150218, end: 20150220
  18. ACETAMINOPHEN. [Concomitant]
     Active Substance: ACETAMINOPHEN
     Indication: HEADACHE
     Dosage: DAILY DOSE: 325MG PRN
     Route: 048
     Dates: start: 20140717
  19. ACETAMINOPHEN. [Concomitant]
     Active Substance: ACETAMINOPHEN
     Indication: ARTHRITIS
     Route: 048
     Dates: start: 20150215
  20. AMLODIPINE [Concomitant]
     Active Substance: AMLODIPINE BESYLATE
     Route: 048
     Dates: start: 20150216
  21. LANTUS [Concomitant]
     Active Substance: INSULIN GLARGINE
     Dosage: FORMULATION: 100 UNITS/ML INJECTION
     Route: 058
     Dates: start: 20150219
  22. APIDRA [Concomitant]
     Active Substance: INSULIN GLULISINE
     Route: 058
     Dates: start: 20150220
  23. ZOFRAN [Concomitant]
     Active Substance: ONDANSETRON HYDROCHLORIDE
     Indication: PROPHYLAXIS OF NAUSEA AND VOMITING
  24. LINAGLIPTIN [Suspect]
     Active Substance: LINAGLIPTIN
     Indication: TYPE 2 DIABETES MELLITUS
     Route: 048
     Dates: start: 20141103, end: 20141106
  25. APIDRA [Concomitant]
     Active Substance: INSULIN GLULISINE
     Route: 058
     Dates: start: 20150219
  26. APIDRA [Concomitant]
     Active Substance: INSULIN GLULISINE
     Route: 058
     Dates: start: 20150217
  27. NACL NORMAL SALINE [Concomitant]
     Indication: FLUID REPLACEMENT
     Dosage: STRENGTH: 0.9%
     Route: 042
     Dates: start: 20150217, end: 20150220
  28. LINAGLIPTIN [Suspect]
     Active Substance: LINAGLIPTIN
     Route: 048
     Dates: end: 20150215
  29. AMLODIPINE [Concomitant]
     Active Substance: AMLODIPINE BESYLATE
     Route: 048
     Dates: start: 20150218
  30. LANTUS [Concomitant]
     Active Substance: INSULIN GLARGINE
     Dosage: FORMULATION: 100 UNITS/ML INJECTION
     Route: 058
     Dates: start: 20150219, end: 20150219
  31. APIDRA [Concomitant]
     Active Substance: INSULIN GLULISINE
     Route: 058
     Dates: start: 20150216
  32. ZOFRAN [Concomitant]
     Active Substance: ONDANSETRON HYDROCHLORIDE
     Indication: PROPHYLAXIS OF NAUSEA AND VOMITING
     Route: 042
     Dates: start: 20150215
  33. HYDRALAZINE [Concomitant]
     Active Substance: HYDRALAZINE HYDROCHLORIDE
     Indication: HYPERTENSION
     Route: 042
     Dates: start: 20150215
  34. LISINOPRIL. [Concomitant]
     Active Substance: LISINOPRIL
     Indication: HYPERTENSION
     Route: 048
     Dates: start: 20150216, end: 20150220
  35. LANTUS [Concomitant]
     Active Substance: INSULIN GLARGINE
     Route: 058
     Dates: start: 20150216
  36. LANTUS [Concomitant]
     Active Substance: INSULIN GLARGINE
     Route: 058
     Dates: start: 20150213
  37. APIDRA [Concomitant]
     Active Substance: INSULIN GLULISINE
     Route: 058
     Dates: start: 20150220
  38. APIDRA [Concomitant]
     Active Substance: INSULIN GLULISINE
     Route: 058
     Dates: start: 20150220
  39. APIDRA [Concomitant]
     Active Substance: INSULIN GLULISINE
     Route: 058
     Dates: start: 20150215
  40. DEXTROSE. [Concomitant]
     Active Substance: DEXTROSE
     Indication: HYPOGLYCAEMIA
     Dosage: STRENGTH : 50%
     Route: 042
     Dates: start: 20150215
  41. TAMIFLU [Concomitant]
     Active Substance: OSELTAMIVIR PHOSPHATE
     Indication: INFLUENZA
     Dosage: DOSE PER APPLICATION: 30MG/5ML
     Route: 048
     Dates: start: 20150215, end: 20150220
  42. GLUCAGON. [Concomitant]
     Active Substance: GLUCAGON
     Indication: HYPOGLYCAEMIA
     Route: 030
     Dates: start: 20150215

REACTIONS (5)
  - Acute kidney injury [Recovered/Resolved]
  - End stage renal disease [Unknown]
  - Dyspnoea [Recovered/Resolved]
  - Glomerular filtration rate decreased [Unknown]
  - Acute kidney injury [Recovered/Resolved]

NARRATIVE: CASE EVENT DATE: 20141106
